FAERS Safety Report 13155373 (Version 3)
Quarter: 2017Q1

REPORT INFORMATION
  Report Type: Spontaneous
  Country: US (occurrence: US)
  Receive Date: 20170126
  Receipt Date: 20170223
  Transmission Date: 20170428
  Serious: Yes (Disabling, Congenital Anomaly)
  Sender: FDA-Public Use
  Company Number: US-ALK ABELLO INC-1062391

PATIENT
  Age: 42 Year
  Sex: Male
  Weight: 104 kg

DRUGS (1)
  1. VARIOUS ALK ALLERGEN EXTRACTS (SEE ATTACHMENT) [Suspect]
     Active Substance: ALLERGENIC EXTRACTS
     Indication: RHINITIS ALLERGIC

REACTIONS (2)
  - Neuropathy peripheral [Not Recovered/Not Resolved]
  - Multiple sclerosis [Not Recovered/Not Resolved]
